FAERS Safety Report 13020224 (Version 1)
Quarter: 2016Q4

REPORT INFORMATION
  Report Type: Report from Study
  Country: CA (occurrence: CA)
  Receive Date: 20161212
  Receipt Date: 20161212
  Transmission Date: 20170207
  Serious: Yes (Other)
  Sender: FDA-Public Use
  Company Number: CA-BIOGEN-2016BI00327827

PATIENT
  Age: 51 Year
  Sex: Female

DRUGS (1)
  1. FAMPYRA [Suspect]
     Active Substance: DALFAMPRIDINE
     Indication: GAIT DISTURBANCE
     Route: 048
     Dates: start: 20151209

REACTIONS (5)
  - Fall [Recovered/Resolved]
  - Skin mass [Not Recovered/Not Resolved]
  - Dizziness [Recovered/Resolved]
  - Head injury [Recovered/Resolved]
  - Balance disorder [Unknown]

NARRATIVE: CASE EVENT DATE: 20161203
